FAERS Safety Report 20864563 (Version 2)
Quarter: 2022Q4

REPORT INFORMATION
  Report Type: Report from Study
  Country: US (occurrence: US)
  Receive Date: 20220524
  Receipt Date: 20221030
  Transmission Date: 20230112
  Serious: Yes (Death, Hospitalization, Other)
  Sender: FDA-Public Use
  Company Number: US-ABBVIE-22K-163-4404575-00

PATIENT
  Age: 79 Year
  Sex: Male
  Weight: 93 kg

DRUGS (7)
  1. IMBRUVICA [Suspect]
     Active Substance: IBRUTINIB
     Indication: Chronic lymphocytic leukaemia
     Dosage: STOPPED AS HE WAS TOO WEAK TO SWALLOW?STRENGTH 280 MILLIGRAM?TWICE
     Route: 048
     Dates: start: 20220401
  2. IMBRUVICA [Suspect]
     Active Substance: IBRUTINIB
     Indication: Chronic lymphocytic leukaemia
     Dosage: STRENGTH 420 MILLIGRAM
     Route: 048
     Dates: start: 20220201, end: 20220516
  3. simvastatin Pill [Concomitant]
     Indication: Product used for unknown indication
     Dosage: 20 MG?ONCE
     Route: 048
     Dates: start: 20180101, end: 20220516
  4. Metformin Pill [Concomitant]
     Indication: Product used for unknown indication
     Dosage: 500 MG?TWICE
     Route: 048
     Dates: start: 20220101, end: 20220516
  5. Levothyroxine Pill [Concomitant]
     Indication: Product used for unknown indication
     Dosage: 112 MG?ONCE
     Route: 048
     Dates: start: 20220101, end: 20220516
  6. Dexamethasone Pill [Concomitant]
     Indication: Product used for unknown indication
     Dosage: 2 MG?ONCE
     Route: 048
     Dates: start: 20220101, end: 20220516
  7. levetiracetam pill [Concomitant]
     Indication: Product used for unknown indication
     Dosage: 500 MG?TWICE
     Route: 048
     Dates: start: 20220101, end: 20220516

REACTIONS (7)
  - Spinal cord compression [Fatal]
  - Hospitalisation [Fatal]
  - Respiratory disorder [Fatal]
  - Dysphagia [Fatal]
  - Asthenia [Fatal]
  - Neoplasm malignant [Fatal]
  - Back pain [Fatal]

NARRATIVE: CASE EVENT DATE: 20220415
